FAERS Safety Report 19451443 (Version 1)
Quarter: 2021Q2

REPORT INFORMATION
  Report Type: Spontaneous
  Country: US (occurrence: US)
  Receive Date: 20210623
  Receipt Date: 20210623
  Transmission Date: 20210717
  Serious: No
  Sender: FDA-Public Use
  Company Number: ALC2020US008233

PATIENT

DRUGS (1)
  1. PATADAY [Suspect]
     Active Substance: OLOPATADINE HYDROCHLORIDE
     Indication: DRY EYE
     Dosage: UNK, ONCE/SINGLE
     Route: 065

REACTIONS (4)
  - Ocular hyperaemia [Unknown]
  - Condition aggravated [Unknown]
  - Eye swelling [Unknown]
  - Eye pruritus [Unknown]
